FAERS Safety Report 22291991 (Version 1)
Quarter: 2023Q2

REPORT INFORMATION
  Report Type: Spontaneous
  Country: AU (occurrence: AU)
  Receive Date: 20230508
  Receipt Date: 20230508
  Transmission Date: 20230722
  Serious: No
  Sender: FDA-Public Use
  Company Number: AU-ALKEM LABORATORIES LIMITED-AU-ALKEM-2022-03706

PATIENT
  Age: 41 Year
  Sex: Male

DRUGS (2)
  1. ASPIRIN [Suspect]
     Active Substance: ASPIRIN
     Indication: Product used for unknown indication
     Dosage: UNK
     Route: 065
  2. ROSUVASTATIN [Suspect]
     Active Substance: ROSUVASTATIN
     Indication: Product used for unknown indication
     Dosage: UNK
     Route: 065

REACTIONS (10)
  - Asthenia [Unknown]
  - Ataxia [Unknown]
  - CADASIL [Unknown]
  - Cerebral disorder [Unknown]
  - Cognitive disorder [Unknown]
  - Delusion [Unknown]
  - Dizziness [Unknown]
  - Dysarthria [Unknown]
  - Headache [Unknown]
  - Personality change [Unknown]
